FAERS Safety Report 8135675-7 (Version None)
Quarter: 2012Q1

REPORT INFORMATION
  Report Type: 
  Country: None (occurrence: None)
  Receive Date: 20120214
  Receipt Date: 20120206
  Transmission Date: 20120608
  Serious: Yes (Hospitalization)
  Sender: FDA-Public Use
  Company Number: PHHY2012US009665

PATIENT

DRUGS (4)
  1. RISPERIDONE [Concomitant]
     Dosage: 6 MG,DAILY
  2. CLOZAPINE [Suspect]
     Dosage: 12.5 MG, BID
  3. CLOZAPINE [Suspect]
     Dosage: 300 MG DAILY
  4. CLOZAPINE [Suspect]
     Dosage: 400 MG,DAILY

REACTIONS (4)
  - LEUKOCYTOSIS [None]
  - PSYCHOTIC DISORDER [None]
  - NEUTROPHIL COUNT INCREASED [None]
  - AGITATION [None]
